FAERS Safety Report 18617876 (Version 1)
Quarter: 2020Q4

REPORT INFORMATION
  Report Type: Spontaneous
  Country: US (occurrence: US)
  Receive Date: 20201214
  Receipt Date: 20201214
  Transmission Date: 20210114
  Serious: No
  Sender: FDA-Public Use
  Company Number: None

PATIENT
  Sex: Female

DRUGS (19)
  1. ATORVASTATIN [Concomitant]
     Active Substance: ATORVASTATIN
  2. GABAPENTIN. [Concomitant]
     Active Substance: GABAPENTIN
  3. IRBESARTAN. [Concomitant]
     Active Substance: IRBESARTAN
  4. CEPHALEXIN. [Concomitant]
     Active Substance: CEPHALEXIN
  5. MUPIROCIN. [Concomitant]
     Active Substance: MUPIROCIN
  6. PROPAFENONE. [Concomitant]
     Active Substance: PROPAFENONE
  7. FLUOXETINE [Concomitant]
     Active Substance: FLUOXETINE HYDROCHLORIDE
  8. CLOPIDOGREL [Concomitant]
     Active Substance: CLOPIDOGREL BISULFATE
  9. OXYCODONE [Concomitant]
     Active Substance: OXYCODONE
  10. ROPINIROLE. [Concomitant]
     Active Substance: ROPINIROLE
  11. VALSART/ HCTZ [Concomitant]
  12. ESBRIET [Suspect]
     Active Substance: PIRFENIDONE
     Indication: IDIOPATHIC PULMONARY FIBROSIS
     Route: 048
     Dates: start: 20190504
  13. CLINDAMYCIN. [Concomitant]
     Active Substance: CLINDAMYCIN
  14. CLONIDINE. [Concomitant]
     Active Substance: CLONIDINE
  15. ESTRADIOL. [Concomitant]
     Active Substance: ESTRADIOL
  16. LEVOTHYROXIN [Concomitant]
     Active Substance: LEVOTHYROXINE
  17. METOPROL TAR [Concomitant]
  18. PRAVASTATIN. [Concomitant]
     Active Substance: PRAVASTATIN
  19. TRAZODONE [Concomitant]
     Active Substance: TRAZODONE HYDROCHLORIDE

REACTIONS (1)
  - Therapy interrupted [None]
